FAERS Safety Report 8376820-8 (Version None)
Quarter: 2012Q2

REPORT INFORMATION
  Report Type: 
  Country: None (occurrence: None)
  Receive Date: 20120522
  Receipt Date: 20120518
  Transmission Date: 20120825
  Serious: Yes (Hospitalization)
  Sender: FDA-Public Use
  Company Number: JP-EISAI INC-E2020-10214-CLI-JP

PATIENT
  Sex: Female
  Weight: 68 kg

DRUGS (9)
  1. SENNOSIDE [Concomitant]
     Indication: CONSTIPATION
     Route: 048
  2. MAGMITT [Concomitant]
     Indication: CONSTIPATION
     Route: 048
  3. GASMOTIN [Concomitant]
     Indication: CONSTIPATION
     Route: 048
  4. DONEPEZIL HCL [Suspect]
     Dosage: DOUBLE BLIND
     Route: 048
     Dates: start: 20111115
  5. VESICARE OD [Concomitant]
     Route: 048
     Dates: start: 20111101
  6. DONEPEZIL HCL [Suspect]
     Indication: PARKINSON'S DISEASE
     Dosage: DOUBLE BLIND
     Route: 048
     Dates: start: 20111101, end: 20111114
  7. MADOPAR [Concomitant]
     Indication: PARKINSON'S DISEASE
     Route: 048
  8. PERMAX [Concomitant]
     Indication: PARKINSON'S DISEASE
     Route: 048
  9. LEVOTHYROXINE SODIUM [Concomitant]
     Indication: HYPOTHYROIDISM
     Route: 048
     Dates: start: 20120119

REACTIONS (1)
  - DYSTONIA [None]
